FAERS Safety Report 8415735-3 (Version None)
Quarter: 2012Q2

REPORT INFORMATION
  Report Type: 
  Country: None (occurrence: None)
  Receive Date: 20120606
  Receipt Date: 20120409
  Transmission Date: 20120825
  Serious: Yes (Other)
  Sender: FDA-Public Use
  Company Number: US-ASTELLAS-2012US005214

PATIENT
  Sex: Male

DRUGS (1)
  1. ERLOTINIB HYDROCHLORIDE [Suspect]
     Indication: NON-SMALL CELL LUNG CANCER
     Dosage: 150 MG, UID/QD
     Route: 048
     Dates: start: 20120112, end: 20120305

REACTIONS (5)
  - BLOOD TEST ABNORMAL [None]
  - DIARRHOEA [None]
  - RASH [None]
  - DISEASE PROGRESSION [None]
  - RASH GENERALISED [None]
